FAERS Safety Report 5727597-3 (Version None)
Quarter: 2008Q2

REPORT INFORMATION
  Report Type: 
  Country: None (occurrence: None)
  Receive Date: 20080505
  Receipt Date: 20080430
  Transmission Date: 20081010
  Serious: Yes (Life-Threatening, Hospitalization, Other)
  Sender: FDA-Public Use
  Company Number: JP-BRISTOL-MYERS SQUIBB COMPANY-14163166

PATIENT
  Age: 65 Year
  Sex: Female

DRUGS (9)
  1. TAXOL [Suspect]
     Indication: BREAST CANCER METASTATIC
     Route: 041
     Dates: start: 20051213, end: 20080417
  2. HERCEPTIN [Concomitant]
     Route: 041
     Dates: start: 20051213, end: 20080417
  3. AROMASIN [Concomitant]
     Route: 048
     Dates: start: 20050830
  4. LEUCON [Concomitant]
     Route: 048
     Dates: start: 20070501
  5. LENDORMIN [Concomitant]
     Route: 048
     Dates: start: 20070501
  6. GLYSENNID [Concomitant]
     Route: 048
     Dates: start: 20070501
  7. LASIX [Concomitant]
     Route: 048
     Dates: start: 20070501
  8. ZYRTEC [Concomitant]
     Route: 048
     Dates: start: 20050810
  9. DECADRON [Concomitant]
     Route: 042
     Dates: start: 20080417, end: 20080417

REACTIONS (1)
  - ACUTE PULMONARY OEDEMA [None]
